FAERS Safety Report 7116933-1 (Version None)
Quarter: 2010Q4

REPORT INFORMATION
  Report Type: 
  Country: None (occurrence: None)
  Receive Date: 20101122
  Receipt Date: 20101110
  Transmission Date: 20110411
  Serious: Yes (Hospitalization, Other)
  Sender: FDA-Public Use
  Company Number: US-AMGEN-KDL429498

PATIENT

DRUGS (3)
  1. ENBREL [Suspect]
     Indication: RHEUMATOID ARTHRITIS
     Dosage: UNK UNK, QWK
     Dates: start: 20100714
  2. ENBREL [Suspect]
     Dosage: 50 MG, QWK
     Dates: start: 20100714, end: 20101013
  3. TREXALL [Suspect]

REACTIONS (3)
  - FATIGUE [None]
  - HISTOPLASMOSIS DISSEMINATED [None]
  - PARAESTHESIA [None]
